FAERS Safety Report 11930372 (Version 1)
Quarter: 2016Q1

REPORT INFORMATION
  Report Type: Spontaneous
  Country: BR (occurrence: BR)
  Receive Date: 20160120
  Receipt Date: 20160120
  Transmission Date: 20160526
  Serious: Yes (Other)
  Sender: FDA-Public Use
  Company Number: BR-PFIZER INC-2016020371

PATIENT
  Age: 88 Year
  Sex: Female
  Weight: 66 kg

DRUGS (5)
  1. AAS INFANTIL [Concomitant]
     Active Substance: ASPIRIN
     Indication: COAGULOPATHY
     Dosage: 1 TABLET AT LUNCH
     Dates: start: 2014
  2. XALATAN [Suspect]
     Active Substance: LATANOPROST
     Indication: GLAUCOMA
     Dosage: 3 UG, 1 DROP IN EACH EYE, AT NIGHT
     Dates: start: 2005
  3. EXCELIN [Concomitant]
     Indication: DEMENTIA ALZHEIMER^S TYPE
     Dosage: 2 TABLETS DAILY
     Dates: start: 2005
  4. CALCIFEROL /00318501/ [Concomitant]
     Indication: VITAMIN D ABNORMAL
     Dosage: 1 TABLET DAILY
     Dates: start: 2006
  5. LABIRIN [Concomitant]
     Active Substance: BETAHISTINE
     Indication: LABYRINTHITIS
     Dosage: 1 TABLET AT NIGHT
     Dates: start: 2005

REACTIONS (2)
  - Cerebrovascular accident [Unknown]
  - Dementia Alzheimer^s type [Unknown]
